FAERS Safety Report 17193923 (Version 4)
Quarter: 2020Q1

REPORT INFORMATION
  Report Type: Report from Study
  Country: None (occurrence: AU)
  Receive Date: 20191223
  Receipt Date: 20200310
  Transmission Date: 20200409
  Serious: Yes (Death, Life-Threatening, Hospitalization, Other)
  Sender: FDA-Public Use
  Company Number: AU-ABBVIE-19P-008-3199437-00

PATIENT
  Age: 60 Year
  Sex: Male
  Weight: 90 kg

DRUGS (20)
  1. PRAZOSIN. [Concomitant]
     Active Substance: PRAZOSIN
     Indication: HYPERTENSION
     Route: 048
     Dates: start: 2007, end: 20191111
  2. LIPOSOMAL AMPHOTERICIN B [Concomitant]
     Active Substance: AMPHOTERICIN B
     Indication: ANTIFUNGAL PROPHYLAXIS
     Dosage: FREQUENCY: MONDAYS, WEDNESDAYS, FRIDAYS
     Route: 042
     Dates: start: 20190913
  3. VENETOCLAX. [Suspect]
     Active Substance: VENETOCLAX
     Route: 048
     Dates: start: 20190909, end: 20191208
  4. AZACITIDINE. [Suspect]
     Active Substance: AZACITIDINE
     Indication: MYELODYSPLASTIC SYNDROME
     Dosage: DAYS 1-5, 8-9 IN 28 DAY CYCLE
     Route: 058
     Dates: start: 20190805, end: 20191203
  5. VALACICLOVIR [Concomitant]
     Active Substance: VALACYCLOVIR HYDROCHLORIDE
     Route: 048
     Dates: start: 20191018, end: 20191111
  6. CEFEPIME [Concomitant]
     Active Substance: CEFEPIME HYDROCHLORIDE
     Route: 042
     Dates: start: 20191111, end: 20191111
  7. NORVASC [Concomitant]
     Active Substance: AMLODIPINE BESYLATE
     Indication: HYPERTENSION
     Route: 048
     Dates: start: 2007, end: 20191216
  8. VALACICLOVIR [Concomitant]
     Active Substance: VALACYCLOVIR HYDROCHLORIDE
     Indication: ANTIVIRAL PROPHYLAXIS
     Route: 048
     Dates: start: 2017, end: 20191009
  9. VANCOMYCIN [Concomitant]
     Active Substance: VANCOMYCIN
     Route: 042
     Dates: start: 20191112, end: 20191112
  10. CEFEPIME [Concomitant]
     Active Substance: CEFEPIME HYDROCHLORIDE
     Indication: FEBRILE NEUTROPENIA
     Route: 042
     Dates: start: 20190824, end: 20190830
  11. VANCOMYCIN [Concomitant]
     Active Substance: VANCOMYCIN
     Route: 042
     Dates: start: 20191114, end: 20191118
  12. PRAZOSIN. [Concomitant]
     Active Substance: PRAZOSIN
     Route: 048
     Dates: start: 20191123, end: 20191216
  13. IMDUR [Concomitant]
     Active Substance: ISOSORBIDE MONONITRATE
     Indication: CORONARY ARTERY DISEASE
     Route: 048
     Dates: start: 2007, end: 20191217
  14. VANCOMYCIN [Concomitant]
     Active Substance: VANCOMYCIN
     Indication: FEBRILE NEUTROPENIA
     Route: 042
     Dates: start: 20190826, end: 20190826
  15. VENETOCLAX. [Suspect]
     Active Substance: VENETOCLAX
     Indication: MYELODYSPLASTIC SYNDROME
     Dosage: DAYS 1-14 IN 28 DAY CYCLE
     Route: 048
     Dates: start: 20190805, end: 20190814
  16. VALACICLOVIR [Concomitant]
     Active Substance: VALACYCLOVIR HYDROCHLORIDE
     Route: 048
     Dates: start: 20191123, end: 20200103
  17. PARACETAMOL [Concomitant]
     Active Substance: ACETAMINOPHEN
     Indication: OSTEOARTHRITIS
     Route: 048
     Dates: start: 2015, end: 20200104
  18. CEFEPIME [Concomitant]
     Active Substance: CEFEPIME HYDROCHLORIDE
     Route: 042
     Dates: start: 20191009, end: 20191011
  19. VANCOMYCIN [Concomitant]
     Active Substance: VANCOMYCIN
     Route: 042
     Dates: start: 20191113, end: 20191114
  20. VANCOMYCIN [Concomitant]
     Active Substance: VANCOMYCIN
     Indication: STAPHYLOCOCCAL BACTERAEMIA
     Route: 042
     Dates: start: 20190826, end: 20190829

REACTIONS (5)
  - Neutropenic sepsis [Recovered/Resolved]
  - Respiratory failure [Unknown]
  - Pneumonia [Fatal]
  - Pneumonia [Recovered/Resolved]
  - Febrile neutropenia [Unknown]

NARRATIVE: CASE EVENT DATE: 20191216
